FAERS Safety Report 15885648 (Version 8)
Quarter: 2019Q3

REPORT INFORMATION
  Report Type: Spontaneous
  Country: HU (occurrence: HU)
  Receive Date: 20190129
  Receipt Date: 20190723
  Transmission Date: 20191004
  Serious: Yes (Other)
  Sender: FDA-Public Use
  Company Number: HU-MYLANLABS-2019M1007599

PATIENT
  Age: 44 Year
  Sex: Male

DRUGS (28)
  1. CARVEDILOL. [Suspect]
     Active Substance: CARVEDILOL
     Indication: PRODUCT USED FOR UNKNOWN INDICATION
     Dosage: 25 MILLIGRAM, QD (12.5 MG, BID)
     Route: 065
  2. CARVEDILOL. [Suspect]
     Active Substance: CARVEDILOL
     Dosage: 12.5 MILLIGRAM, BID
  3. FUROSEMIDE. [Concomitant]
     Active Substance: FUROSEMIDE
     Dosage: 40 MILLIGRAM
  4. WARFARIN [Concomitant]
     Active Substance: WARFARIN
     Dosage: 5 MILLIGRAM, QD
  5. ALLOPURINOL. [Suspect]
     Active Substance: ALLOPURINOL
     Indication: PRODUCT USED FOR UNKNOWN INDICATION
     Dosage: 200 MILLIGRAM, QD (100 MG, BID)
     Route: 065
  6. ALLOPURINOL. [Suspect]
     Active Substance: ALLOPURINOL
     Dosage: 100 MILLIGRAM, BID
  7. CO-ENZIME Q-10 [Concomitant]
     Indication: PRODUCT USED FOR UNKNOWN INDICATION
     Dosage: 200 MILLIGRAM, QD (100 MG, BID)
     Route: 065
  8. CO-ENZIME Q-10 [Concomitant]
     Dosage: 100 MILLIGRAM, QD(100 MG, BID)
     Route: 065
  9. RAMIPRIL. [Suspect]
     Active Substance: RAMIPRIL
     Indication: PRODUCT USED FOR UNKNOWN INDICATION
     Dosage: 10 MILLIGRAM, QD (5 MG, BID)
     Route: 065
  10. RAMIPRIL. [Suspect]
     Active Substance: RAMIPRIL
     Dosage: 5 MILLIGRAM, QD (5 MG, BID)
     Route: 065
  11. SPIRONOLACTONE. [Concomitant]
     Active Substance: SPIRONOLACTONE
     Dosage: 25 MILLIGRAM, BID (50 MILLIGRAM, QD)
  12. SPIRONOLACTONE. [Concomitant]
     Active Substance: SPIRONOLACTONE
     Indication: PRODUCT USED FOR UNKNOWN INDICATION
     Dosage: 50 MILLIGRAM, QD (25 MG, BID)
     Route: 065
  13. SPIRONOLACTONE. [Concomitant]
     Active Substance: SPIRONOLACTONE
     Dosage: UNK
  14. FUROSEMIDE. [Concomitant]
     Active Substance: FUROSEMIDE
     Indication: PRODUCT USED FOR UNKNOWN INDICATION
     Dosage: 40 MILLIGRAM, QD (40 MG, QD)
     Route: 065
  15. WARFARIN [Concomitant]
     Active Substance: WARFARIN
     Indication: PRODUCT USED FOR UNKNOWN INDICATION
     Dosage: 7.5 MG, QD
     Route: 065
  16. WARFARIN [Concomitant]
     Active Substance: WARFARIN
     Dosage: UNK, DAILY UNK (ALTERNATION OF 5-7.5 MG)
  17. POTASSIUM [Concomitant]
     Active Substance: POTASSIUM
     Dosage: UNK
  18. ALLOPURINOL. [Suspect]
     Active Substance: ALLOPURINOL
     Dosage: 100 MILLIGRAM, QD(100 MG, BID)
     Route: 065
  19. SPIRONOLACTONE. [Concomitant]
     Active Substance: SPIRONOLACTONE
     Dosage: UNK
  20. SPIRONOLACTONE. [Concomitant]
     Active Substance: SPIRONOLACTONE
     Dosage: 25 MILLIGRAM, QD(25 MG, BID)
     Route: 065
  21. WARFARIN [Concomitant]
     Active Substance: WARFARIN
     Dosage: UNK
  22. UBIDECARENONE [Concomitant]
     Active Substance: UBIDECARENONE
     Dosage: UNK
  23. FUROSEMIDE. [Concomitant]
     Active Substance: FUROSEMIDE
     Dosage: UNK
  24. CO-ENZIME Q-10 [Concomitant]
     Dosage: UNK
  25. RAMIPRIL. [Suspect]
     Active Substance: RAMIPRIL
     Dosage: 5 MILLIGRAM, BID
  26. CARVEDILOL. [Suspect]
     Active Substance: CARVEDILOL
     Dosage: 12.5 MILLIGRAM, QD(12.5 MG, BID   )
     Route: 065
  27. POTASSIUM [Concomitant]
     Active Substance: POTASSIUM
     Indication: PRODUCT USED FOR UNKNOWN INDICATION
     Dosage: 600 MILLIGRAM, QD (600 MG, QD)
     Route: 065
  28. UBIDECARENONE [Concomitant]
     Active Substance: UBIDECARENONE
     Dosage: 100 MILLIGRAM, BID (200 MILLIGRAM, QD)

REACTIONS (17)
  - Atrial tachycardia [Unknown]
  - Upper respiratory tract infection [Recovered/Resolved]
  - N-terminal prohormone brain natriuretic peptide increased [Recovered/Resolved]
  - Cough [Unknown]
  - Asphyxia [Unknown]
  - Tricuspid valve incompetence [Recovering/Resolving]
  - General physical health deterioration [Unknown]
  - Cardiomegaly [Unknown]
  - Dyspnoea [Unknown]
  - Tachycardia [Unknown]
  - Hydrothorax [Unknown]
  - Inspiratory capacity decreased [Unknown]
  - Ejection fraction decreased [Recovering/Resolving]
  - Mitral valve incompetence [Recovering/Resolving]
  - Ventricular internal diameter abnormal [Recovering/Resolving]
  - Oedema peripheral [Recovered/Resolved]
  - Tachycardia induced cardiomyopathy [Unknown]

NARRATIVE: CASE EVENT DATE: 201409
